FAERS Safety Report 4449622-2 (Version None)
Quarter: 2004Q3

REPORT INFORMATION
  Report Type: 
  Country: None (occurrence: None)
  Receive Date: 20040913
  Receipt Date: 20031021
  Transmission Date: 20050211
  Serious: Yes (Other)
  Sender: FDA-Public Use
  Company Number: 2003183262BR

PATIENT
  Age: 44 Year
  Sex: Female

DRUGS (1)
  1. NICORETTE [Suspect]
     Indication: SMOKING CESSATION THERAPY
     Dosage: BUCCAL
     Route: 002
     Dates: start: 20000101

REACTIONS (3)
  - AGEUSIA [None]
  - APHASIA [None]
  - PHARYNGEAL ERYTHEMA [None]
